FAERS Safety Report 7320413-8 (Version None)
Quarter: 2011Q1

REPORT INFORMATION
  Report Type: 
  Country: None (occurrence: None)
  Receive Date: 20110228
  Receipt Date: 20110217
  Transmission Date: 20110831
  Serious: Yes (Hospitalization)
  Sender: FDA-Public Use
  Company Number: A0897824A

PATIENT
  Age: 76 Year
  Sex: Male

DRUGS (1)
  1. AVANDIA [Suspect]
     Indication: DIABETES MELLITUS
     Dosage: 8MG PER DAY
     Route: 048
     Dates: start: 20040501, end: 20090101

REACTIONS (10)
  - FLUID RETENTION [None]
  - PAIN [None]
  - ARTERIOSCLEROSIS [None]
  - GAIT DISTURBANCE [None]
  - CARDIAC ARREST [None]
  - CEREBROVASCULAR ACCIDENT [None]
  - INJURY [None]
  - CARDIAC DISORDER [None]
  - AMNESIA [None]
  - FLUID OVERLOAD [None]
